APPROVED DRUG PRODUCT: VISTARIL
Active Ingredient: HYDROXYZINE HYDROCHLORIDE
Strength: 50MG/ML **Federal Register determination that product was not discontinued or withdrawn for safety or effectiveness reasons**
Dosage Form/Route: INJECTABLE;INJECTION
Application: N011111 | Product #002
Applicant: PFIZER LABORATORIES DIV PFIZER INC
Approved: Approved Prior to Jan 1, 1982 | RLD: Yes | RS: No | Type: DISCN